FAERS Safety Report 8382455 (Version 2)
Quarter: 2013Q3

REPORT INFORMATION
  Report Type: Spontaneous
  Country: CH (occurrence: CH)
  Receive Date: 20120201
  Receipt Date: 20130722
  Transmission Date: 20140515
  Serious: Yes (Hospitalization, Other)
  Sender: FDA-Public Use
  Company Number: PHHY2012CH006539

PATIENT
  Age: 9 Year
  Sex: Female
  Weight: 27 kg

DRUGS (5)
  1. EXJADE [Suspect]
     Indication: SICKLE CELL ANAEMIA WITH CRISIS
     Dosage: 500 MG, DAILY ON EVEN DAYS
     Route: 048
     Dates: start: 201001
  2. EXJADE [Suspect]
     Dosage: 100 MG, DAILY ON ODD DAYS
     Route: 048
     Dates: start: 2010, end: 20120103
  3. LITALIR [Concomitant]
     Dosage: UNK UKN, UNK
  4. OSPEN [Concomitant]
     Indication: SICKLE CELL ANAEMIA WITH CRISIS
     Dosage: UNK UKN, UNK
     Route: 048
  5. FOLIC ACID [Concomitant]
     Dosage: 2.5 MG, DAILY (TWO WEEKS PER MONTH)
     Route: 048

REACTIONS (13)
  - Hyperammonaemia [Recovered/Resolved]
  - Metabolic acidosis [Recovered/Resolved]
  - Hyperkalaemia [Recovered/Resolved]
  - Asthenia [Recovered/Resolved]
  - Somnolence [Recovered/Resolved]
  - Hepatitis [Recovered/Resolved]
  - Cholestasis [Recovered/Resolved]
  - Altered state of consciousness [Recovered/Resolved]
  - Toxicity to various agents [Recovered/Resolved]
  - Sickle cell anaemia with crisis [Recovering/Resolving]
  - Back pain [Recovered/Resolved]
  - Abdominal pain [Recovered/Resolved]
  - Vomiting [Recovered/Resolved]
